FAERS Safety Report 5170635-X (Version None)
Quarter: 2006Q4

REPORT INFORMATION
  Report Type: 
  Country: None (occurrence: None)
  Receive Date: 20061205
  Receipt Date: 20061121
  Transmission Date: 20070319
  Serious: Yes (Hospitalization)
  Sender: FDA-Public Use
  Company Number: 2006144178

PATIENT
  Age: 79 Year
  Sex: Male
  Weight: 107 kg

DRUGS (1)
  1. SUTENT [Suspect]
     Indication: RENAL CELL CARCINOMA STAGE UNSPECIFIED
     Dosage: 37.5 MG (37.5 MG, QD: EVERY DAY), ORAL
     Route: 048
     Dates: start: 20061004, end: 20061031

REACTIONS (3)
  - ASTHENIA [None]
  - FACE OEDEMA [None]
  - OEDEMA PERIPHERAL [None]
